FAERS Safety Report 9559337 (Version 1)
Quarter: 2013Q3

REPORT INFORMATION
  Report Type: Spontaneous
  Country: US (occurrence: None)
  Receive Date: 20130906
  Receipt Date: 20130906
  Transmission Date: 20140515
  Serious: Yes (Other)
  Sender: FDA-Public Use
  Company Number: 163-POMAL-13052048

PATIENT
  Age: 75 Year
  Sex: Male
  Weight: 114.31 kg

DRUGS (4)
  1. POMALYST [Suspect]
     Indication: PLASMA CELL MYELOMA
     Dosage: 21 IN 21 D
     Route: 048
     Dates: start: 201304
  2. OXYCODONE (OXYCODONE) (UNKNOWN) (OXYCODONE) [Concomitant]
  3. WATER PILL (DIURETICS) (UNKNOWN) [Concomitant]
  4. NAPROXEN (NAPROXEN SODIUM) [Concomitant]

REACTIONS (3)
  - Drug intolerance [None]
  - Back pain [None]
  - Chest pain [None]
